FAERS Safety Report 17903334 (Version 1)
Quarter: 2020Q2

REPORT INFORMATION
  Report Type: Spontaneous
  Country: IT (occurrence: IT)
  Receive Date: 20200617
  Receipt Date: 20200617
  Transmission Date: 20200714
  Serious: Yes (Hospitalization, Other)
  Sender: FDA-Public Use
  Company Number: IT-SUN PHARMACEUTICAL INDUSTRIES LTD-2020RR-241637

PATIENT
  Age: 78 Year
  Sex: Female

DRUGS (3)
  1. TACHIDOL 500 MG/30 MG COMPRESSE EFFERVESCENTI [Interacting]
     Active Substance: ACETAMINOPHEN\CODEINE PHOSPHATE
     Indication: ARTHRALGIA
     Dosage: IN TOTAL
     Route: 048
     Dates: start: 20200228, end: 20200228
  2. ROSUVASTATIN. [Suspect]
     Active Substance: ROSUVASTATIN
     Indication: HYPERTENSION
     Dosage: 5 MILLIGRAM, DAILY
     Route: 048
     Dates: start: 20180107, end: 20200228
  3. TACHIDOL 500 MG/30 MG COMPRESSE EFFERVESCENTI [Interacting]
     Active Substance: ACETAMINOPHEN\CODEINE PHOSPHATE
     Indication: ARTHRALGIA

REACTIONS (3)
  - Drug interaction [Recovered/Resolved]
  - Hepatitis acute [Recovered/Resolved]
  - Hypertransaminasaemia [Recovered/Resolved]

NARRATIVE: CASE EVENT DATE: 20200228
